FAERS Safety Report 10505675 (Version 1)
Quarter: 2014Q4

REPORT INFORMATION
  Report Type: Spontaneous
  Country: CH (occurrence: CH)
  Receive Date: 20141008
  Receipt Date: 20141008
  Transmission Date: 20150528
  Serious: Yes (Hospitalization)
  Sender: FDA-Public Use
  Company Number: PHHY2014CH126951

PATIENT
  Age: 78 Year
  Sex: Female

DRUGS (12)
  1. AFINITOR [Suspect]
     Active Substance: EVEROLIMUS
     Indication: OFF LABEL USE
  2. MST CONTINUS [Concomitant]
     Active Substance: MORPHINE SULFATE
     Dosage: 90 MG, BID
  3. SERESTA [Concomitant]
     Active Substance: OXAZEPAM
     Dosage: 15 MG, QD
  4. EUTHYROX [Concomitant]
     Active Substance: LEVOTHYROXINE SODIUM
     Dosage: 25 UG, QD
  5. CIPRALEX [Concomitant]
     Active Substance: ESCITALOPRAM OXALATE
     Dosage: 10 MG, QD
     Route: 048
  6. AFINITOR [Suspect]
     Active Substance: EVEROLIMUS
     Indication: LYMPHANGIOSIS CARCINOMATOSA
     Route: 048
     Dates: start: 20140618, end: 20140804
  7. COLECALCIFEROL [Concomitant]
     Active Substance: CHOLECALCIFEROL
     Dosage: 3 MG, QD
  8. OXAZEPAM. [Concomitant]
     Active Substance: OXAZEPAM
     Dosage: 15 MG, QD
     Route: 048
  9. COAPROVEL [Concomitant]
     Active Substance: HYDROCHLOROTHIAZIDE\IRBESARTAN
     Indication: ESSENTIAL HYPERTENSION
     Dosage: 1 DF, UNK
  10. CALCIMAGON D3 [Concomitant]
     Active Substance: CALCIUM\CHOLECALCIFEROL
     Indication: VITAMIN D DEFICIENCY
  11. IRBESARTAN. [Concomitant]
     Active Substance: IRBESARTAN
  12. AROMASIN [Suspect]
     Active Substance: EXEMESTANE
     Indication: LYMPHANGIOSIS CARCINOMATOSA
     Dosage: 25 MG, UNK
     Route: 048
     Dates: start: 20140618, end: 20140814

REACTIONS (4)
  - Pruritus [Recovering/Resolving]
  - Acute prerenal failure [Recovered/Resolved]
  - Hyperglycaemia [Recovered/Resolved]
  - Generalised oedema [Recovering/Resolving]

NARRATIVE: CASE EVENT DATE: 201406
